FAERS Safety Report 25526512 (Version 1)
Quarter: 2025Q3

REPORT INFORMATION
  Report Type: Spontaneous
  Country: US (occurrence: US)
  Receive Date: 20250707
  Receipt Date: 20250707
  Transmission Date: 20251021
  Serious: Yes (Other)
  Sender: MYLAN
  Company Number: US-MYLANLABS-2025M1054674

PATIENT
  Sex: Female

DRUGS (68)
  1. ACETAZOLAMIDE [Suspect]
     Active Substance: ACETAZOLAMIDE
     Indication: Intraocular pressure increased
  2. ACETAZOLAMIDE [Suspect]
     Active Substance: ACETAZOLAMIDE
     Route: 048
  3. ACETAZOLAMIDE [Suspect]
     Active Substance: ACETAZOLAMIDE
     Route: 048
  4. ACETAZOLAMIDE [Suspect]
     Active Substance: ACETAZOLAMIDE
  5. TIMOLOL [Suspect]
     Active Substance: TIMOLOL
     Indication: Intraocular pressure increased
  6. TIMOLOL [Suspect]
     Active Substance: TIMOLOL
     Route: 061
  7. TIMOLOL [Suspect]
     Active Substance: TIMOLOL
     Route: 061
  8. TIMOLOL [Suspect]
     Active Substance: TIMOLOL
  9. BRIMONIDINE [Suspect]
     Active Substance: BRIMONIDINE TARTRATE
     Indication: Intraocular pressure increased
  10. BRIMONIDINE [Suspect]
     Active Substance: BRIMONIDINE TARTRATE
     Route: 061
  11. BRIMONIDINE [Suspect]
     Active Substance: BRIMONIDINE TARTRATE
     Route: 061
  12. BRIMONIDINE [Suspect]
     Active Substance: BRIMONIDINE TARTRATE
  13. DORZOLAMIDE [Suspect]
     Active Substance: DORZOLAMIDE
     Indication: Intraocular pressure increased
  14. DORZOLAMIDE [Suspect]
     Active Substance: DORZOLAMIDE
     Route: 061
  15. DORZOLAMIDE [Suspect]
     Active Substance: DORZOLAMIDE
     Route: 061
  16. DORZOLAMIDE [Suspect]
     Active Substance: DORZOLAMIDE
  17. BUPROPION [Concomitant]
     Active Substance: BUPROPION
     Indication: Ex-tobacco user
  18. BUPROPION [Concomitant]
     Active Substance: BUPROPION
     Route: 065
  19. BUPROPION [Concomitant]
     Active Substance: BUPROPION
     Route: 065
  20. BUPROPION [Concomitant]
     Active Substance: BUPROPION
  21. ATROPINE [Concomitant]
     Active Substance: ATROPINE
     Indication: Glaucoma
  22. ATROPINE [Concomitant]
     Active Substance: ATROPINE
     Route: 065
  23. ATROPINE [Concomitant]
     Active Substance: ATROPINE
     Route: 065
  24. ATROPINE [Concomitant]
     Active Substance: ATROPINE
  25. PREDNISOLONE ACETATE [Concomitant]
     Active Substance: PREDNISOLONE ACETATE
     Indication: Glaucoma
  26. PREDNISOLONE ACETATE [Concomitant]
     Active Substance: PREDNISOLONE ACETATE
     Route: 065
  27. PREDNISOLONE ACETATE [Concomitant]
     Active Substance: PREDNISOLONE ACETATE
     Route: 065
  28. PREDNISOLONE ACETATE [Concomitant]
     Active Substance: PREDNISOLONE ACETATE
  29. ACYCLOVIR [Concomitant]
     Active Substance: ACYCLOVIR
     Indication: Product used for unknown indication
  30. ACYCLOVIR [Concomitant]
     Active Substance: ACYCLOVIR
     Route: 065
  31. ACYCLOVIR [Concomitant]
     Active Substance: ACYCLOVIR
     Route: 065
  32. ACYCLOVIR [Concomitant]
     Active Substance: ACYCLOVIR
  33. ADDERALL [Concomitant]
     Active Substance: AMPHETAMINE ASPARTATE\AMPHETAMINE SULFATE\DEXTROAMPHETAMINE SACCHARATE\DEXTROAMPHETAMINE SULFATE
     Indication: Product used for unknown indication
  34. ADDERALL [Concomitant]
     Active Substance: AMPHETAMINE ASPARTATE\AMPHETAMINE SULFATE\DEXTROAMPHETAMINE SACCHARATE\DEXTROAMPHETAMINE SULFATE
     Route: 065
  35. ADDERALL [Concomitant]
     Active Substance: AMPHETAMINE ASPARTATE\AMPHETAMINE SULFATE\DEXTROAMPHETAMINE SACCHARATE\DEXTROAMPHETAMINE SULFATE
     Route: 065
  36. ADDERALL [Concomitant]
     Active Substance: AMPHETAMINE ASPARTATE\AMPHETAMINE SULFATE\DEXTROAMPHETAMINE SACCHARATE\DEXTROAMPHETAMINE SULFATE
  37. AUGMENTIN [Concomitant]
     Active Substance: AMOXICILLIN\CLAVULANATE POTASSIUM
     Indication: Product used for unknown indication
  38. AUGMENTIN [Concomitant]
     Active Substance: AMOXICILLIN\CLAVULANATE POTASSIUM
     Route: 065
  39. AUGMENTIN [Concomitant]
     Active Substance: AMOXICILLIN\CLAVULANATE POTASSIUM
     Route: 065
  40. AUGMENTIN [Concomitant]
     Active Substance: AMOXICILLIN\CLAVULANATE POTASSIUM
  41. LEVAQUIN [Concomitant]
     Active Substance: LEVOFLOXACIN
     Indication: Product used for unknown indication
  42. LEVAQUIN [Concomitant]
     Active Substance: LEVOFLOXACIN
     Route: 065
  43. LEVAQUIN [Concomitant]
     Active Substance: LEVOFLOXACIN
     Route: 065
  44. LEVAQUIN [Concomitant]
     Active Substance: LEVOFLOXACIN
  45. LEVETIRACETAM [Concomitant]
     Active Substance: LEVETIRACETAM
     Indication: Product used for unknown indication
  46. LEVETIRACETAM [Concomitant]
     Active Substance: LEVETIRACETAM
     Route: 065
  47. LEVETIRACETAM [Concomitant]
     Active Substance: LEVETIRACETAM
     Route: 065
  48. LEVETIRACETAM [Concomitant]
     Active Substance: LEVETIRACETAM
  49. LEVOTHYROXINE [Concomitant]
     Active Substance: LEVOTHYROXINE
     Indication: Product used for unknown indication
  50. LEVOTHYROXINE [Concomitant]
     Active Substance: LEVOTHYROXINE
     Route: 065
  51. LEVOTHYROXINE [Concomitant]
     Active Substance: LEVOTHYROXINE
     Route: 065
  52. LEVOTHYROXINE [Concomitant]
     Active Substance: LEVOTHYROXINE
  53. LIOTHYRONINE [Concomitant]
     Active Substance: LIOTHYRONINE
     Indication: Product used for unknown indication
  54. LIOTHYRONINE [Concomitant]
     Active Substance: LIOTHYRONINE
     Route: 065
  55. LIOTHYRONINE [Concomitant]
     Active Substance: LIOTHYRONINE
     Route: 065
  56. LIOTHYRONINE [Concomitant]
     Active Substance: LIOTHYRONINE
  57. MELATONIN [Concomitant]
     Active Substance: MELATONIN
     Indication: Product used for unknown indication
  58. MELATONIN [Concomitant]
     Active Substance: MELATONIN
     Route: 065
  59. MELATONIN [Concomitant]
     Active Substance: MELATONIN
     Route: 065
  60. MELATONIN [Concomitant]
     Active Substance: MELATONIN
  61. OXYCODONE [Concomitant]
     Active Substance: OXYCODONE
     Indication: Product used for unknown indication
  62. OXYCODONE [Concomitant]
     Active Substance: OXYCODONE
     Route: 065
  63. OXYCODONE [Concomitant]
     Active Substance: OXYCODONE
     Route: 065
  64. OXYCODONE [Concomitant]
     Active Substance: OXYCODONE
  65. POSACONAZOLE [Concomitant]
     Active Substance: POSACONAZOLE
     Indication: Product used for unknown indication
  66. POSACONAZOLE [Concomitant]
     Active Substance: POSACONAZOLE
     Route: 065
  67. POSACONAZOLE [Concomitant]
     Active Substance: POSACONAZOLE
     Route: 065
  68. POSACONAZOLE [Concomitant]
     Active Substance: POSACONAZOLE

REACTIONS (2)
  - Drug ineffective [Unknown]
  - Off label use [Unknown]
